FAERS Safety Report 9367486 (Version 1)
Quarter: 2013Q2

REPORT INFORMATION
  Report Type: Spontaneous
  Country: US (occurrence: US)
  Receive Date: 20130625
  Receipt Date: 20130625
  Transmission Date: 20140414
  Serious: No
  Sender: FDA-Public Use
  Company Number: US-ASTELLAS-2012US006972

PATIENT
  Age: 64 Year
  Sex: Female
  Weight: 79 kg

DRUGS (9)
  1. VESICARE [Suspect]
     Indication: HYPERTONIC BLADDER
     Dosage: 5 MG, UID/QD
     Route: 048
     Dates: start: 20100801
  2. LIPITOR [Concomitant]
     Indication: BLOOD CHOLESTEROL INCREASED
     Dosage: 20 MG, UID/QD
     Route: 048
     Dates: start: 20070801
  3. LEVOTHYROXINE [Concomitant]
     Indication: THYROID DISORDER
     Dosage: 75 MG, UID/QD
     Route: 048
     Dates: start: 20070801
  4. LOSARTAN POTASSIUM [Concomitant]
     Indication: HYPERTENSION
     Dosage: 100 MG, UID/QD
     Route: 048
     Dates: start: 20020801
  5. SERTRALINE [Concomitant]
     Indication: DEPRESSION
     Dosage: 10 MG, UID/QD
     Route: 048
     Dates: start: 20020801
  6. MELOXICAM [Concomitant]
     Indication: OSTEOARTHRITIS
     Dosage: 7.5 MG, UID/QD
     Route: 048
     Dates: start: 20020801
  7. OMEGA 3 FISH OIL [Concomitant]
     Indication: PRODUCT USED FOR UNKNOWN INDICATION
     Dosage: 1200 MG, UID/QD
     Route: 048
     Dates: start: 20070801
  8. VITAMIN D                          /00107901/ [Concomitant]
     Indication: PRODUCT USED FOR UNKNOWN INDICATION
     Dosage: 100 MG, UID/QD
     Route: 048
     Dates: start: 20070801
  9. DULERA [Concomitant]
     Indication: PRODUCT USED FOR UNKNOWN INDICATION
     Dosage: 1 DF, UID/QD
     Route: 055
     Dates: start: 20070801

REACTIONS (4)
  - Drug ineffective [Unknown]
  - Bladder disorder [Unknown]
  - Pollakiuria [Unknown]
  - Urinary tract infection [Unknown]
